FAERS Safety Report 7209522-1 (Version None)
Quarter: 2011Q1

REPORT INFORMATION
  Report Type: 
  Country: None (occurrence: None)
  Receive Date: 20110103
  Receipt Date: 20110103
  Transmission Date: 20110831
  Serious: Yes (Hospitalization)
  Sender: FDA-Public Use
  Company Number: None

PATIENT
  Age: 54 Year
  Sex: Male
  Weight: 99.8 kg

DRUGS (3)
  1. SELEGILINE [Suspect]
     Indication: PARKINSON'S DISEASE
     Dosage: 5 MG BID PO
     Route: 048
     Dates: start: 20100101, end: 20100922
  2. RIFAMPIN [Suspect]
     Indication: ARTHRITIS BACTERIAL
     Dosage: IV
     Route: 042
     Dates: start: 20100919, end: 20100922
  3. RIFAMPIN [Suspect]
     Indication: SURGERY
     Dosage: IV
     Route: 042
     Dates: start: 20100919, end: 20100922

REACTIONS (2)
  - CHILLS [None]
  - NEUROLEPTIC MALIGNANT SYNDROME [None]
